FAERS Safety Report 19794687 (Version 1)
Quarter: 2021Q3

REPORT INFORMATION
  Report Type: Spontaneous
  Country: JP (occurrence: JP)
  Receive Date: 20210906
  Receipt Date: 20210906
  Transmission Date: 20211014
  Serious: Yes (Other)
  Sender: FDA-Public Use
  Company Number: JP-DSJP-DSJ-2021-128457

PATIENT
  Age: 83 Year
  Sex: Male
  Weight: 63 kg

DRUGS (11)
  1. CIBENZOLINE [Concomitant]
     Active Substance: CIFENLINE
     Dosage: 50 MG, TID, AFTER EACH MEAL
     Route: 048
  2. BISOPROLOL FUMARATE. [Concomitant]
     Active Substance: BISOPROLOL FUMARATE
     Dosage: 2.5 MG, QD, MORNING
     Route: 048
  3. CIBENZOLINE [Concomitant]
     Active Substance: CIFENLINE
     Dosage: 50 MG, BID
     Route: 048
  4. SPIRONOLACTONE. [Concomitant]
     Active Substance: SPIRONOLACTONE
     Dosage: 25 MG, QD, MORNING
     Route: 048
  5. CIMETIDINE [Concomitant]
     Active Substance: CIMETIDINE
     Dosage: 200 MG, BID, AFTER BREAKFAST AND DINNER
     Route: 048
  6. LIXIANA TABLETS 30MG [Suspect]
     Active Substance: EDOXABAN TOSYLATE
     Indication: ATRIAL FIBRILLATION
     Dosage: 30 MG, QD
     Route: 048
  7. PERINDOPRIL [PERINDOPRIL ERBUMINE] [Concomitant]
     Active Substance: PERINDOPRIL ERBUMINE
     Dosage: 4 MG, QD, MORNING
     Route: 048
  8. FUROSEMIDE. [Concomitant]
     Active Substance: FUROSEMIDE
     Dosage: 40 MG, QD, MORNING
     Route: 048
  9. PERINDOPRIL [PERINDOPRIL ERBUMINE] [Concomitant]
     Active Substance: PERINDOPRIL ERBUMINE
     Dosage: 2 MG, QD
     Route: 048
  10. ASPIRIN [ACETYLSALICYLIC ACID] [Concomitant]
     Active Substance: ASPIRIN
     Indication: CORONARY ARTERIAL STENT INSERTION
     Dosage: 100 MG, QD, MORNING
     Route: 048
  11. FUROSEMIDE. [Concomitant]
     Active Substance: FUROSEMIDE
     Dosage: 60 MG, QD
     Route: 048

REACTIONS (2)
  - Renal impairment [Recovering/Resolving]
  - Hyperkalaemia [Recovered/Resolved]
